FAERS Safety Report 10135252 (Version 3)
Quarter: 2014Q2

REPORT INFORMATION
  Report Type: Spontaneous
  Country: DE (occurrence: DE)
  Receive Date: 20140428
  Receipt Date: 20140624
  Transmission Date: 20141212
  Serious: Yes (Hospitalization, Other)
  Sender: FDA-Public Use
  Company Number: DE-BAYER-2014-061813

PATIENT
  Sex: Male
  Weight: 110 kg

DRUGS (14)
  1. XOFIGO [Suspect]
     Indication: PROSTATE CANCER
     Dosage: UNK
     Dates: start: 20140417, end: 20140417
  2. METOPROLOL [Concomitant]
     Dosage: 1 DF, QD
  3. NITRENDIPIN [Concomitant]
     Dosage: 1 DF, QD
  4. ASPIRIN PROTECT [Concomitant]
     Dosage: 1 DF, QD
  5. TAMSULOSIN [Concomitant]
     Dosage: 1 DF, UNK
  6. CO-DIOVAN [Concomitant]
     Dosage: 1 DF, QOD
  7. SIMVASTATIN [Concomitant]
     Dosage: 1 DF, QD
  8. OMEPRAZOL [Concomitant]
     Dosage: 1 DF, BID
  9. FENTANYL [Concomitant]
     Dosage: UNK
  10. TORASEMID [Concomitant]
     Dosage: 1 DF, QD
  11. AMITRIPTYLINE [Concomitant]
     Dosage: 1 DF, QD
  12. PANTOPRAZOLE [Concomitant]
     Dosage: 1 DF, QD
  13. NOVAMINSULFON [Concomitant]
     Dosage: 0 GTT, Q1HR
  14. PREDNISON [Concomitant]
     Dosage: 1 DF, QD

REACTIONS (4)
  - Hypertension [None]
  - Panic attack [None]
  - Pain [None]
  - Cardiac disorder [None]
